FAERS Safety Report 7508408-2 (Version None)
Quarter: 2011Q2

REPORT INFORMATION
  Report Type: 
  Country: None (occurrence: None)
  Receive Date: 20110421
  Receipt Date: 20110414
  Transmission Date: 20111010
  Serious: Yes (Other)
  Sender: FDA-Public Use
  Company Number: SPV1-2011-00020

PATIENT
  Age: 20 Year
  Sex: Male
  Weight: 65.8 kg

DRUGS (1)
  1. VYVANSE [Suspect]
     Indication: ATTENTION DEFICIT/HYPERACTIVITY DISORDER
     Dosage: 40 MG, 1X/DAY: QD, ORAL, 40 MG CAPSULE, ORAL
     Route: 046
     Dates: start: 20100501, end: 20101129

REACTIONS (5)
  - PSYCHOTIC DISORDER [None]
  - INTENTIONAL DRUG MISUSE [None]
  - HYPERSOMNIA [None]
  - DRUG DIVERSION [None]
  - ANGER [None]
